FAERS Safety Report 24428406 (Version 2)
Quarter: 2024Q4

REPORT INFORMATION
  Report Type: Spontaneous
  Country: US (occurrence: US)
  Receive Date: 20241011
  Receipt Date: 20241223
  Transmission Date: 20250115
  Serious: No
  Sender: PFIZER
  Company Number: US-PFIZER INC-202400274694

PATIENT
  Age: 72 Year
  Sex: Female

DRUGS (2)
  1. VELSIPITY [Suspect]
     Active Substance: ETRASIMOD ARGININE
     Dosage: 2 MG
  2. MAGNESIUM [Concomitant]
     Active Substance: MAGNESIUM
     Indication: Memory impairment
     Dosage: UNK

REACTIONS (3)
  - Haemorrhage [Unknown]
  - Asthenia [Unknown]
  - Drug ineffective [Unknown]
